FAERS Safety Report 9566228 (Version 2)
Quarter: 2013Q4

REPORT INFORMATION
  Report Type: Spontaneous
  Country: PT (occurrence: PT)
  Receive Date: 20130930
  Receipt Date: 20131111
  Transmission Date: 20140711
  Serious: Yes (Other)
  Sender: FDA-Public Use
  Company Number: PT-ABBVIE-13P-130-1151876-00

PATIENT
  Age: 41 Year
  Sex: Male
  Weight: 60 kg

DRUGS (6)
  1. HUMIRA [Suspect]
     Indication: PSORIASIS
     Dosage: HIGH DOSE
     Route: 058
     Dates: start: 200806, end: 201210
  2. HUMIRA [Suspect]
     Indication: CROHN^S DISEASE
  3. CORTICOSTEROIDS [Concomitant]
     Dosage: 5 - 10 MG DAILY
     Dates: start: 1999, end: 2012
  4. SULFASALAZINE [Concomitant]
     Dates: start: 1999, end: 2009
  5. SULFASALAZINE [Concomitant]
     Dates: start: 2013
  6. AZATHIOPRINE [Concomitant]
     Dates: start: 2001, end: 2013

REACTIONS (1)
  - Malignant melanoma [Recovered/Resolved]
